FAERS Safety Report 5398530-1 (Version None)
Quarter: 2007Q3

REPORT INFORMATION
  Report Type: 
  Country: None (occurrence: None)
  Receive Date: 20070726
  Receipt Date: 20060724
  Transmission Date: 20080115
  Serious: No
  Sender: FDA-Public Use
  Company Number: US-AMGEN-KDL187546

PATIENT
  Sex: Male
  Weight: 65.8 kg

DRUGS (10)
  1. PROCRIT [Suspect]
     Indication: MYELODYSPLASTIC SYNDROME
     Dates: start: 20060601
  2. CARDIAC MEDICATION NOS [Concomitant]
  3. FUROSEMIDE [Concomitant]
  4. FERRUM [Concomitant]
     Route: 048
  5. FERROUS SULFATE [Concomitant]
     Route: 048
  6. COUMADIN [Concomitant]
  7. ISOSORBIDE DINITRATE [Concomitant]
  8. POTASSIUM CHLORIDE [Concomitant]
  9. OMEPRAZOLE [Concomitant]
  10. TERAZOSIN HCL [Concomitant]

REACTIONS (4)
  - ARTHRALGIA [None]
  - BACK PAIN [None]
  - FATIGUE [None]
  - WEIGHT DECREASED [None]
